FAERS Safety Report 8634540 (Version 2)
Quarter: 2013Q3

REPORT INFORMATION
  Report Type: Spontaneous
  Country: GB (occurrence: GB)
  Receive Date: 20120626
  Receipt Date: 20130930
  Transmission Date: 20140515
  Serious: Yes (Disabling, Other)
  Sender: FDA-Public Use
  Company Number: PHFR2012GB003597

PATIENT
  Age: 47 Year
  Sex: Female

DRUGS (6)
  1. CLOZAPINE [Suspect]
     Indication: PSYCHOTIC DISORDER
     Dosage: 175 MG
     Route: 048
     Dates: end: 20120511
  2. CLOZAPINE [Suspect]
     Indication: SCHIZOPHRENIA
  3. CLOZAPINE [Suspect]
     Indication: LEARNING DISORDER
  4. DETRUSITOL [Concomitant]
  5. IRON [Concomitant]
  6. PROCYCLIDINE [Concomitant]

REACTIONS (2)
  - Cardiac failure [Not Recovered/Not Resolved]
  - Cardiomyopathy [Not Recovered/Not Resolved]
